FAERS Safety Report 12046684 (Version 1)
Quarter: 2016Q1

REPORT INFORMATION
  Report Type: Spontaneous
  Country: US (occurrence: US)
  Receive Date: 20160208
  Receipt Date: 20160208
  Transmission Date: 20160526
  Serious: No
  Sender: FDA-Public Use
  Company Number: US-ABBVIE-15P-163-1368711-00

PATIENT
  Sex: Female

DRUGS (1)
  1. HUMIRA [Suspect]
     Active Substance: ADALIMUMAB
     Indication: COLITIS ULCERATIVE
     Route: 065

REACTIONS (6)
  - Pain in extremity [Unknown]
  - Colitis ulcerative [Unknown]
  - Asthenia [Unknown]
  - Flatulence [Unknown]
  - Musculoskeletal pain [Unknown]
  - Anorectal discomfort [Unknown]
